FAERS Safety Report 18910494 (Version 1)
Quarter: 2021Q1

REPORT INFORMATION
  Report Type: Spontaneous
  Country: NL (occurrence: HR)
  Receive Date: 20210218
  Receipt Date: 20210218
  Transmission Date: 20210420
  Serious: Yes (Life-Threatening)
  Sender: FDA-Public Use
  Company Number: HR-FRESENIUS KABI-FK202101527

PATIENT
  Age: 52 Year
  Sex: Female

DRUGS (5)
  1. ROCURONIUM [Suspect]
     Active Substance: ROCURONIUM BROMIDE
     Indication: GENERAL ANAESTHESIA
     Dosage: PHARMACEUTICAL DOSE FORM (FREE TEXT): UNK
     Route: 042
     Dates: start: 20190918, end: 20190918
  2. PROPOFOL. [Concomitant]
     Active Substance: PROPOFOL
     Indication: GENERAL ANAESTHESIA
     Dosage: PHARMACEUTICAL DOSE FORM (FREE TEXT): UNK
     Route: 042
     Dates: start: 20200918, end: 20200918
  3. ATORVASTATIN CALCIUM. [Concomitant]
     Active Substance: ATORVASTATIN CALCIUM
     Indication: DYSLIPIDAEMIA
     Dosage: PHARMACEUTICAL DOSE FORM (FREE TEXT): FILM?COATED TABLET
     Route: 048
  4. SUFENTANIL [Concomitant]
     Active Substance: SUFENTANIL
     Indication: GENERAL ANAESTHESIA
     Dosage: PHARMACEUTICAL DOSE FORM (FREE TEXT): SOLUTION FOR INJECTION/INFUSION
     Route: 042
     Dates: start: 20200918, end: 20200918
  5. MIDAZOLAM MALEATE [Concomitant]
     Active Substance: MIDAZOLAM MALEATE
     Indication: GENERAL ANAESTHESIA
     Dosage: PHARMACEUTICAL DOSE FORM (FREE TEXT): SOLUTION FOR INJECTION/INFUSION
     Route: 042
     Dates: start: 20200918, end: 20200918

REACTIONS (1)
  - Anaphylactic shock [Recovered/Resolved]

NARRATIVE: CASE EVENT DATE: 20190918
